FAERS Safety Report 6264572-7 (Version None)
Quarter: 2009Q3

REPORT INFORMATION
  Report Type: 
  Country: None (occurrence: None)
  Receive Date: 20090710
  Receipt Date: 20090630
  Transmission Date: 20100115
  Serious: Yes (Other)
  Sender: FDA-Public Use
  Company Number: GB-TEVA-200761ISR

PATIENT
  Age: 89 Year
  Sex: Male

DRUGS (1)
  1. FLUDARABINE PHOSPHATE [Suspect]
     Dates: end: 20060201

REACTIONS (3)
  - CENTRAL NERVOUS SYSTEM INFECTION [None]
  - CONVULSION [None]
  - PARAESTHESIA [None]
